FAERS Safety Report 7279095-6 (Version None)
Quarter: 2011Q1

REPORT INFORMATION
  Report Type: 
  Country: None (occurrence: None)
  Receive Date: 20110207
  Receipt Date: 20110207
  Transmission Date: 20110831
  Serious: Yes (Hospitalization, Other)
  Sender: FDA-Public Use
  Company Number: PHFR2011IE00756

PATIENT
  Sex: Male

DRUGS (1)
  1. CLOZARIL [Suspect]
     Indication: SCHIZOPHRENIA
     Dosage: UNK
     Route: 048
     Dates: start: 20101220, end: 20110123

REACTIONS (4)
  - PNEUMONIA [None]
  - CARDIAC ENZYMES INCREASED [None]
  - WHITE BLOOD CELL COUNT INCREASED [None]
  - INFECTION [None]
